FAERS Safety Report 19130345 (Version 59)
Quarter: 2023Q1

REPORT INFORMATION
  Report Type: Report from Study
  Country: JP (occurrence: JP)
  Receive Date: 20210414
  Receipt Date: 20230123
  Transmission Date: 20230418
  Serious: Yes (Hospitalization, Other)
  Sender: FDA-Public Use
  Company Number: JP-TAKEDA-2021TJP016061

PATIENT
  Sex: Male

DRUGS (83)
  1. ICATIBANT [Suspect]
     Active Substance: ICATIBANT ACETATE
     Indication: Hereditary angioedema
     Dosage: 30 MILLIGRAM, PRN
     Route: 058
     Dates: start: 20200701
  2. ICATIBANT [Suspect]
     Active Substance: ICATIBANT ACETATE
     Indication: Hereditary angioedema
     Dosage: 30 MILLIGRAM, PRN
     Route: 058
     Dates: start: 20200701
  3. ICATIBANT [Suspect]
     Active Substance: ICATIBANT ACETATE
     Dosage: 30 MILLIGRAM, PRN
     Route: 058
     Dates: start: 20210419
  4. ICATIBANT [Suspect]
     Active Substance: ICATIBANT ACETATE
     Dosage: 30 MILLIGRAM, PRN
     Route: 058
     Dates: start: 20210419
  5. ICATIBANT [Suspect]
     Active Substance: ICATIBANT ACETATE
     Dosage: 30 MILLIGRAM, PRN
     Route: 058
     Dates: start: 20210420
  6. ICATIBANT [Suspect]
     Active Substance: ICATIBANT ACETATE
     Dosage: 30 MILLIGRAM, PRN
     Route: 058
     Dates: start: 20210420
  7. ICATIBANT [Suspect]
     Active Substance: ICATIBANT ACETATE
     Dosage: 30 MILLIGRAM, PRN
     Route: 058
  8. ICATIBANT [Suspect]
     Active Substance: ICATIBANT ACETATE
     Dosage: 30 MILLIGRAM, PRN
     Route: 058
  9. ICATIBANT [Suspect]
     Active Substance: ICATIBANT ACETATE
     Dosage: 30 MILLIGRAM, PRN
     Route: 058
     Dates: start: 20210610
  10. ICATIBANT [Suspect]
     Active Substance: ICATIBANT ACETATE
     Dosage: 30 MILLIGRAM, PRN
     Route: 058
     Dates: start: 20210610
  11. ICATIBANT [Suspect]
     Active Substance: ICATIBANT ACETATE
     Dosage: 30 MILLIGRAM, PRN
     Route: 058
     Dates: start: 20210619
  12. ICATIBANT [Suspect]
     Active Substance: ICATIBANT ACETATE
     Dosage: 30 MILLIGRAM, PRN
     Route: 058
     Dates: start: 20210619
  13. ICATIBANT [Suspect]
     Active Substance: ICATIBANT ACETATE
     Dosage: 30 MILLIGRAM, PRN
     Route: 058
     Dates: start: 202106
  14. ICATIBANT [Suspect]
     Active Substance: ICATIBANT ACETATE
     Dosage: 30 MILLIGRAM, PRN
     Route: 058
     Dates: start: 202106
  15. ICATIBANT [Suspect]
     Active Substance: ICATIBANT ACETATE
     Dosage: 30 MILLIGRAM, PRN
     Route: 058
     Dates: start: 20210731
  16. ICATIBANT [Suspect]
     Active Substance: ICATIBANT ACETATE
     Dosage: 30 MILLIGRAM, PRN
     Route: 058
     Dates: start: 20210731
  17. ICATIBANT [Suspect]
     Active Substance: ICATIBANT ACETATE
     Dosage: 30 MILLIGRAM, PRN
     Route: 058
     Dates: start: 20210916, end: 20210916
  18. ICATIBANT [Suspect]
     Active Substance: ICATIBANT ACETATE
     Dosage: 30 MILLIGRAM, PRN
     Route: 058
     Dates: start: 20210916, end: 20210916
  19. ICATIBANT [Suspect]
     Active Substance: ICATIBANT ACETATE
     Dosage: 30 MILLIGRAM, PRN
     Route: 058
     Dates: start: 20210919, end: 20210919
  20. ICATIBANT [Suspect]
     Active Substance: ICATIBANT ACETATE
     Dosage: 30 MILLIGRAM, PRN
     Route: 058
     Dates: start: 20210919, end: 20210919
  21. ICATIBANT [Suspect]
     Active Substance: ICATIBANT ACETATE
     Dosage: 30 MILLIGRAM, PRN
     Route: 058
     Dates: start: 20210921, end: 20210921
  22. ICATIBANT [Suspect]
     Active Substance: ICATIBANT ACETATE
     Dosage: 30 MILLIGRAM, PRN
     Route: 058
     Dates: start: 20210921, end: 20210921
  23. ICATIBANT [Suspect]
     Active Substance: ICATIBANT ACETATE
     Dosage: 30 MILLIGRAM, PRN
     Route: 058
     Dates: start: 20210928, end: 20210928
  24. ICATIBANT [Suspect]
     Active Substance: ICATIBANT ACETATE
     Dosage: 30 MILLIGRAM, PRN
     Route: 058
     Dates: start: 20210928, end: 20210928
  25. ICATIBANT [Suspect]
     Active Substance: ICATIBANT ACETATE
     Dosage: 30 MILLIGRAM, PRN
     Route: 058
     Dates: start: 20210930, end: 20210930
  26. ICATIBANT [Suspect]
     Active Substance: ICATIBANT ACETATE
     Dosage: 30 MILLIGRAM, PRN
     Route: 058
     Dates: start: 20210930, end: 20210930
  27. ICATIBANT [Suspect]
     Active Substance: ICATIBANT ACETATE
     Dosage: 30 MILLIGRAM, PRN
     Route: 058
     Dates: start: 20211001, end: 20211001
  28. ICATIBANT [Suspect]
     Active Substance: ICATIBANT ACETATE
     Dosage: 30 MILLIGRAM, PRN
     Route: 058
     Dates: start: 20211001, end: 20211001
  29. ICATIBANT [Suspect]
     Active Substance: ICATIBANT ACETATE
     Dosage: 30 MILLIGRAM, PRN
     Route: 058
     Dates: start: 20211002, end: 20211002
  30. ICATIBANT [Suspect]
     Active Substance: ICATIBANT ACETATE
     Dosage: 30 MILLIGRAM, PRN
     Route: 058
     Dates: start: 20211002, end: 20211002
  31. ICATIBANT [Suspect]
     Active Substance: ICATIBANT ACETATE
     Dosage: 30 MILLIGRAM, PRN
     Route: 058
     Dates: start: 20211007, end: 20211007
  32. ICATIBANT [Suspect]
     Active Substance: ICATIBANT ACETATE
     Dosage: 30 MILLIGRAM, PRN
     Route: 058
     Dates: start: 20211007, end: 20211007
  33. ICATIBANT [Suspect]
     Active Substance: ICATIBANT ACETATE
     Dosage: 30 MILLIGRAM, PRN
     Route: 058
     Dates: start: 20211011, end: 20211011
  34. ICATIBANT [Suspect]
     Active Substance: ICATIBANT ACETATE
     Dosage: 30 MILLIGRAM, PRN
     Route: 058
     Dates: start: 20211011, end: 20211011
  35. ICATIBANT [Suspect]
     Active Substance: ICATIBANT ACETATE
     Dosage: 30 MILLIGRAM, PRN
     Route: 058
     Dates: start: 20211013, end: 20211013
  36. ICATIBANT [Suspect]
     Active Substance: ICATIBANT ACETATE
     Dosage: 30 MILLIGRAM, PRN
     Route: 058
     Dates: start: 20211013, end: 20211013
  37. ICATIBANT [Suspect]
     Active Substance: ICATIBANT ACETATE
     Dosage: 30 MILLIGRAM, PRN
     Route: 058
     Dates: start: 20211109, end: 20211109
  38. ICATIBANT [Suspect]
     Active Substance: ICATIBANT ACETATE
     Dosage: 30 MILLIGRAM, PRN
     Route: 058
     Dates: start: 20211109, end: 20211109
  39. ICATIBANT [Suspect]
     Active Substance: ICATIBANT ACETATE
     Dosage: 30 MILLIGRAM, PRN
     Route: 058
     Dates: start: 20211210, end: 20211210
  40. ICATIBANT [Suspect]
     Active Substance: ICATIBANT ACETATE
     Dosage: 30 MILLIGRAM, PRN
     Route: 058
     Dates: start: 20211210, end: 20211210
  41. ICATIBANT [Suspect]
     Active Substance: ICATIBANT ACETATE
     Dosage: 30 MILLIGRAM, PRN
     Route: 058
     Dates: start: 20220131, end: 20220131
  42. ICATIBANT [Suspect]
     Active Substance: ICATIBANT ACETATE
     Dosage: 30 MILLIGRAM, PRN
     Route: 058
     Dates: start: 20220131, end: 20220131
  43. ICATIBANT [Suspect]
     Active Substance: ICATIBANT ACETATE
     Dosage: 30 MILLIGRAM, PRN
     Route: 058
     Dates: start: 20220212, end: 20220212
  44. ICATIBANT [Suspect]
     Active Substance: ICATIBANT ACETATE
     Dosage: 30 MILLIGRAM, PRN
     Route: 058
     Dates: start: 20220212, end: 20220212
  45. ICATIBANT [Suspect]
     Active Substance: ICATIBANT ACETATE
     Dosage: 30 MILLIGRAM, PRN
     Route: 058
     Dates: start: 20220310, end: 20220310
  46. ICATIBANT [Suspect]
     Active Substance: ICATIBANT ACETATE
     Dosage: 30 MILLIGRAM, PRN
     Route: 058
     Dates: start: 20220310, end: 20220310
  47. ICATIBANT [Suspect]
     Active Substance: ICATIBANT ACETATE
     Dosage: 30 MILLIGRAM, PRN
     Route: 058
     Dates: start: 20220313, end: 20220313
  48. ICATIBANT [Suspect]
     Active Substance: ICATIBANT ACETATE
     Dosage: 30 MILLIGRAM, PRN
     Route: 058
     Dates: start: 20220313, end: 20220313
  49. ICATIBANT [Suspect]
     Active Substance: ICATIBANT ACETATE
     Dosage: 30 MILLIGRAM, PRN(2 TIMES)
     Route: 058
     Dates: start: 20220316, end: 20220316
  50. ICATIBANT [Suspect]
     Active Substance: ICATIBANT ACETATE
     Dosage: 30 MILLIGRAM, PRN(2 TIMES)
     Route: 058
     Dates: start: 20220316, end: 20220316
  51. ICATIBANT [Suspect]
     Active Substance: ICATIBANT ACETATE
     Dosage: 30 MILLIGRAM, PRN(2 TIMES)
     Route: 058
     Dates: start: 20220414, end: 20220414
  52. ICATIBANT [Suspect]
     Active Substance: ICATIBANT ACETATE
     Dosage: 30 MILLIGRAM, PRN(2 TIMES)
     Route: 058
     Dates: start: 20220414, end: 20220414
  53. ICATIBANT [Suspect]
     Active Substance: ICATIBANT ACETATE
     Dosage: 30 MILLIGRAM, PRN
     Route: 058
     Dates: start: 20220501
  54. ICATIBANT [Suspect]
     Active Substance: ICATIBANT ACETATE
     Dosage: 30 MILLIGRAM, PRN
     Route: 058
     Dates: start: 20220501
  55. ICATIBANT [Suspect]
     Active Substance: ICATIBANT ACETATE
     Dosage: 30 MILLIGRAM, PRN
     Route: 058
     Dates: start: 20220504, end: 20220504
  56. ICATIBANT [Suspect]
     Active Substance: ICATIBANT ACETATE
     Dosage: 30 MILLIGRAM, PRN
     Route: 058
     Dates: start: 20220504, end: 20220504
  57. ICATIBANT [Suspect]
     Active Substance: ICATIBANT ACETATE
     Dosage: 30 MILLIGRAM, PRN
     Route: 058
     Dates: start: 20220505, end: 20220505
  58. ICATIBANT [Suspect]
     Active Substance: ICATIBANT ACETATE
     Dosage: 30 MILLIGRAM, PRN
     Route: 058
     Dates: start: 20220505, end: 20220505
  59. ICATIBANT [Suspect]
     Active Substance: ICATIBANT ACETATE
     Dosage: 30 MILLIGRAM, PRN (2 TIMES)
     Route: 058
     Dates: start: 20220506, end: 20220506
  60. ICATIBANT [Suspect]
     Active Substance: ICATIBANT ACETATE
     Dosage: 30 MILLIGRAM, PRN (2 TIMES)
     Route: 058
     Dates: start: 20220506, end: 20220506
  61. ICATIBANT [Suspect]
     Active Substance: ICATIBANT ACETATE
     Dosage: 30 MILLIGRAM, PRN
     Route: 058
     Dates: start: 20220521, end: 20220521
  62. ICATIBANT [Suspect]
     Active Substance: ICATIBANT ACETATE
     Dosage: 30 MILLIGRAM, PRN
     Route: 058
     Dates: start: 20220521, end: 20220521
  63. ICATIBANT [Suspect]
     Active Substance: ICATIBANT ACETATE
     Dosage: 30 MILLIGRAM, PRN
     Route: 058
     Dates: start: 20220524, end: 20220524
  64. ICATIBANT [Suspect]
     Active Substance: ICATIBANT ACETATE
     Dosage: 30 MILLIGRAM, PRN
     Route: 058
     Dates: start: 20220524, end: 20220524
  65. ICATIBANT [Suspect]
     Active Substance: ICATIBANT ACETATE
     Dosage: 30 MILLIGRAM, PRN
     Route: 058
     Dates: start: 20220602, end: 20220602
  66. ICATIBANT [Suspect]
     Active Substance: ICATIBANT ACETATE
     Dosage: 30 MILLIGRAM, PRN
     Route: 058
     Dates: start: 20220602, end: 20220602
  67. ICATIBANT [Suspect]
     Active Substance: ICATIBANT ACETATE
     Dosage: 30 MILLIGRAM, PRN
     Route: 058
     Dates: start: 20220615, end: 20220615
  68. ICATIBANT [Suspect]
     Active Substance: ICATIBANT ACETATE
     Dosage: 30 MILLIGRAM, PRN
     Route: 058
     Dates: start: 20220615, end: 20220615
  69. ICATIBANT [Suspect]
     Active Substance: ICATIBANT ACETATE
     Dosage: 30 MILLIGRAM, PRN
     Route: 058
     Dates: start: 20220630, end: 20220630
  70. ICATIBANT [Suspect]
     Active Substance: ICATIBANT ACETATE
     Dosage: 30 MILLIGRAM, PRN
     Route: 058
     Dates: start: 20220630, end: 20220630
  71. ICATIBANT [Suspect]
     Active Substance: ICATIBANT ACETATE
     Dosage: 30 MILLIGRAM, PRN
     Route: 058
     Dates: start: 202208, end: 202208
  72. ICATIBANT [Suspect]
     Active Substance: ICATIBANT ACETATE
     Dosage: 30 MILLIGRAM, PRN
     Route: 058
     Dates: start: 202208, end: 202208
  73. ICATIBANT [Suspect]
     Active Substance: ICATIBANT ACETATE
     Dosage: 30 MILLIGRAM, PRN
     Route: 058
     Dates: start: 20220831, end: 20220831
  74. ICATIBANT [Suspect]
     Active Substance: ICATIBANT ACETATE
     Dosage: 30 MILLIGRAM, PRN
     Route: 058
     Dates: start: 20220831, end: 20220831
  75. ICATIBANT [Suspect]
     Active Substance: ICATIBANT ACETATE
     Dosage: 30 MILLIGRAM, PRN
     Route: 058
     Dates: start: 20220922, end: 20220922
  76. ICATIBANT [Suspect]
     Active Substance: ICATIBANT ACETATE
     Dosage: 30 MILLIGRAM, PRN
     Route: 058
     Dates: start: 20220922, end: 20220922
  77. ICATIBANT [Suspect]
     Active Substance: ICATIBANT ACETATE
     Dosage: 30 MILLIGRAM, PRN
     Route: 058
     Dates: start: 20220927, end: 20220927
  78. ICATIBANT [Suspect]
     Active Substance: ICATIBANT ACETATE
     Dosage: 30 MILLIGRAM, PRN
     Route: 058
     Dates: start: 20220927, end: 20220927
  79. INDAPAMIDE [Suspect]
     Active Substance: INDAPAMIDE
     Indication: Blood pressure management
     Dosage: UNK
     Route: 065
  80. ORLADEYO [Suspect]
     Active Substance: BEROTRALSTAT HYDROCHLORIDE
     Indication: Hereditary angioedema
     Dosage: 150 MILLIGRAM
     Route: 065
     Dates: start: 202110
  81. ORLADEYO [Suspect]
     Active Substance: BEROTRALSTAT HYDROCHLORIDE
     Indication: Prophylaxis
  82. AMLODIPINE [Suspect]
     Active Substance: AMLODIPINE BESYLATE
     Indication: Blood pressure management
     Dosage: UNK
     Route: 065
  83. DOXAZOSIN [Concomitant]
     Active Substance: DOXAZOSIN MESYLATE
     Indication: Blood pressure management
     Dosage: UNK
     Route: 065

REACTIONS (110)
  - Gastrointestinal oedema [Unknown]
  - Moyamoya disease [Unknown]
  - Cerebrovascular stenosis [Unknown]
  - Laryngeal oedema [Unknown]
  - Laryngeal obstruction [Unknown]
  - Hereditary angioedema [Unknown]
  - Stress [Unknown]
  - Injection site haemorrhage [Unknown]
  - Acne [Unknown]
  - Pruritus [Unknown]
  - Onychoclasis [Unknown]
  - Cardiac disorder [Unknown]
  - Nasal oedema [Unknown]
  - Oedema peripheral [Unknown]
  - Localised oedema [Unknown]
  - Swelling face [Unknown]
  - Swelling face [Unknown]
  - Swelling [Unknown]
  - Hypoaesthesia eye [Unknown]
  - Lacrimation increased [Unknown]
  - Face oedema [Unknown]
  - Skin papilloma [Unknown]
  - Oedema peripheral [Unknown]
  - Abdominal pain [Unknown]
  - Dyskinesia [Unknown]
  - Chest discomfort [Unknown]
  - Abdominal symptom [Unknown]
  - Circumoral oedema [Recovering/Resolving]
  - Eyelid oedema [Unknown]
  - Swelling face [Unknown]
  - Eyelid pain [Unknown]
  - Eye discharge [Unknown]
  - Localised oedema [Unknown]
  - Lip blister [Unknown]
  - Atonic seizures [Unknown]
  - Sleep disorder [Unknown]
  - Hypoaesthesia [Unknown]
  - Hyperhidrosis [Unknown]
  - Choking sensation [Unknown]
  - Oedema peripheral [Unknown]
  - Back pain [Unknown]
  - Hypoaesthesia [Unknown]
  - Therapeutic response decreased [Unknown]
  - Hereditary angioedema [Not Recovered/Not Resolved]
  - Injection site pain [Unknown]
  - Head discomfort [Unknown]
  - Dry mouth [Unknown]
  - Physical deconditioning [Unknown]
  - Swelling [Unknown]
  - Swelling [Recovering/Resolving]
  - Peripheral swelling [Recovering/Resolving]
  - Headache [Unknown]
  - Feeling abnormal [Recovering/Resolving]
  - Injection site bruising [Not Recovered/Not Resolved]
  - Economic problem [Not Recovered/Not Resolved]
  - Feelings of worthlessness [Unknown]
  - Musculoskeletal stiffness [Not Recovered/Not Resolved]
  - Choking sensation [Unknown]
  - Malaise [Unknown]
  - Peripheral swelling [Unknown]
  - Dehydration [Unknown]
  - Fall [Unknown]
  - Pain [Unknown]
  - Faeces soft [Unknown]
  - Somnolence [Unknown]
  - Inadequate diet [Unknown]
  - Bone pain [Unknown]
  - Anxiety [Unknown]
  - Pollakiuria [Unknown]
  - Epistaxis [Unknown]
  - Tension [Unknown]
  - Contusion [Unknown]
  - Product use complaint [Unknown]
  - Erythema [Unknown]
  - Arthralgia [Not Recovered/Not Resolved]
  - Joint dislocation [Not Recovered/Not Resolved]
  - Fear of disease [Unknown]
  - Inappropriate schedule of product administration [Unknown]
  - Muscle discomfort [Unknown]
  - Dizziness [Unknown]
  - Balance disorder [Unknown]
  - Throat irritation [Unknown]
  - Discomfort [Unknown]
  - Oesophageal pain [Unknown]
  - Vaccination site swelling [Unknown]
  - Peripheral swelling [Unknown]
  - Lacrimation increased [Unknown]
  - Somnolence [Unknown]
  - Arthralgia [Unknown]
  - Hereditary angioedema [Unknown]
  - Weight increased [Unknown]
  - Feeling abnormal [Not Recovered/Not Resolved]
  - Conjunctivitis [Unknown]
  - Hordeolum [Unknown]
  - Periorbital swelling [Recovered/Resolved]
  - Headache [Recovering/Resolving]
  - Peripheral swelling [Recovering/Resolving]
  - Groin pain [Recovering/Resolving]
  - Abdominal discomfort [Recovering/Resolving]
  - Otitis externa [Recovering/Resolving]
  - Pain [Recovering/Resolving]
  - Abdominal distension [Not Recovered/Not Resolved]
  - Faeces soft [Not Recovered/Not Resolved]
  - Injection site pain [Unknown]
  - Fall [Unknown]
  - Skin abrasion [Unknown]
  - Tenderness [Unknown]
  - Prostate tenderness [Unknown]
  - Incontinence [Unknown]
  - Hereditary angioedema [Unknown]

NARRATIVE: CASE EVENT DATE: 20200101
